FAERS Safety Report 15862905 (Version 3)
Quarter: 2019Q1

REPORT INFORMATION
  Report Type: Spontaneous
  Country: US (occurrence: US)
  Receive Date: 20190124
  Receipt Date: 20190227
  Transmission Date: 20190417
  Serious: No
  Sender: FDA-Public Use
  Company Number: US-BIOGEN-2019BI00683437

PATIENT
  Age: 58 Year
  Sex: Female

DRUGS (1)
  1. TYSABRI [Suspect]
     Active Substance: NATALIZUMAB
     Indication: MULTIPLE SCLEROSIS
     Route: 042
     Dates: start: 20161130

REACTIONS (10)
  - Rib fracture [Unknown]
  - Mental impairment [Unknown]
  - Fatigue [Unknown]
  - Ligament rupture [Unknown]
  - Tendon laxity [Unknown]
  - Visual acuity reduced [Unknown]
  - Gait disturbance [Unknown]
  - Muscle rupture [Unknown]
  - Back injury [Unknown]
  - Fall [Unknown]

NARRATIVE: CASE EVENT DATE: 201809
